FAERS Safety Report 10331032 (Version 1)
Quarter: 2014Q3

REPORT INFORMATION
  Report Type: Spontaneous
  Country: CH (occurrence: CH)
  Receive Date: 20140722
  Receipt Date: 20140722
  Transmission Date: 20150326
  Serious: Yes (Death)
  Sender: FDA-Public Use
  Company Number: CH-ROCHE-1436717

PATIENT
  Age: 51 Year
  Sex: Female

DRUGS (7)
  1. XELODA [Suspect]
     Active Substance: CAPECITABINE
     Indication: METAPLASTIC BREAST CARCINOMA
     Route: 048
     Dates: start: 201403, end: 20140527
  2. PERTUZUMAB [Concomitant]
     Active Substance: PERTUZUMAB
     Route: 065
     Dates: start: 201308, end: 201311
  3. TAMOXIFEN [Concomitant]
     Active Substance: TAMOXIFEN
     Route: 065
     Dates: start: 200908, end: 201005
  4. ZOLADEX [Concomitant]
     Active Substance: GOSERELIN ACETATE
     Route: 065
     Dates: start: 200908, end: 201005
  5. HERCEPTIN [Suspect]
     Active Substance: TRASTUZUMAB
     Indication: METAPLASTIC BREAST CARCINOMA
     Route: 051
     Dates: start: 200908, end: 20140527
  6. ARIMIDEX [Concomitant]
     Active Substance: ANASTROZOLE
     Route: 065
     Dates: start: 201112, end: 201306
  7. AROMASIN [Concomitant]
     Active Substance: EXEMESTANE
     Route: 065
     Dates: start: 201306, end: 201308

REACTIONS (4)
  - Ventricular fibrillation [Fatal]
  - Ejection fraction decreased [Fatal]
  - Hypertension [Unknown]
  - Ventricular hypokinesia [Fatal]

NARRATIVE: CASE EVENT DATE: 2014
